FAERS Safety Report 6272119-4 (Version None)
Quarter: 2009Q3

REPORT INFORMATION
  Report Type: 
  Country: None (occurrence: None)
  Receive Date: 20090717
  Receipt Date: 20090708
  Transmission Date: 20100115
  Serious: Yes (Disabling)
  Sender: FDA-Public Use
  Company Number: JP-ASTRAZENECA-2007AP01039

PATIENT
  Age: 79 Year
  Sex: Male
  Weight: 64 kg

DRUGS (6)
  1. MARCAINE HYDROCHLORIDE PRESERVATIVE FREE [Suspect]
     Indication: SPINAL ANAESTHESIA
     Route: 029
     Dates: start: 20061129
  2. ANAPEINE INJECTION [Suspect]
     Indication: EPIDURAL ANAESTHESIA
     Dosage: WITH 2.5 ML OF SALINE.
     Route: 008
     Dates: start: 20061129
  3. XYLOCAINE W/ EPINEPHRINE [Suspect]
     Indication: EPIDURAL ANAESTHESIA
     Route: 008
     Dates: start: 20061129
  4. DORMICUM [Concomitant]
     Indication: SEDATION
     Route: 042
     Dates: start: 20061129
  5. SOSEGON [Concomitant]
     Indication: ANALGESIC THERAPY
     Route: 042
     Dates: start: 20061129
  6. ROPION [Concomitant]
     Indication: ANALGESIC THERAPY
     Route: 042
     Dates: start: 20061129

REACTIONS (3)
  - ANORECTAL DISORDER [None]
  - BLADDER DISORDER [None]
  - ILLUSION [None]
